FAERS Safety Report 13647372 (Version 1)
Quarter: 2017Q2

REPORT INFORMATION
  Report Type: Spontaneous
  Country: FR (occurrence: FR)
  Receive Date: 20170613
  Receipt Date: 20170613
  Transmission Date: 20170830
  Serious: Yes (Other)
  Sender: FDA-Public Use
  Company Number: FR-GLAXOSMITHKLINE-FR2017GSK088957

PATIENT
  Age: 65 Year
  Sex: Female

DRUGS (2)
  1. NICOPASS [Suspect]
     Active Substance: NICOTINE
     Indication: SMOKING CESSATION THERAPY
     Dosage: MORE THAN 30 LOZENGES PER DAY
     Route: 002
     Dates: end: 201702
  2. NICOPASS [Suspect]
     Active Substance: NICOTINE
     Dosage: MORE THAN 30 LOZENGES
     Route: 002
     Dates: start: 201705

REACTIONS (6)
  - Wrong technique in product usage process [Not Recovered/Not Resolved]
  - Intentional product misuse [Not Recovered/Not Resolved]
  - Drug use disorder [Not Recovered/Not Resolved]
  - Intentional overdose [Not Recovered/Not Resolved]
  - Fungal infection [Recovered/Resolved]
  - Intentional product use issue [Not Recovered/Not Resolved]

NARRATIVE: CASE EVENT DATE: 201702
